FAERS Safety Report 10663671 (Version 1)
Quarter: 2014Q4

REPORT INFORMATION
  Report Type: Spontaneous
  Country: US (occurrence: US)
  Receive Date: 20141219
  Receipt Date: 20141219
  Transmission Date: 20150529
  Serious: Yes (Other)
  Sender: FDA-Public Use
  Company Number: US-ACCORD-027597

PATIENT
  Age: 17 Month
  Sex: Male

DRUGS (10)
  1. CODEINE [Concomitant]
     Active Substance: CODEINE
  2. SULFAMETHOXAZOLE/TRIMETHOPRIM [Concomitant]
     Route: 048
  3. HYDROCORTISONE. [Concomitant]
     Active Substance: HYDROCORTISONE
     Dosage: 0.5% TOPICAL OINTMENT (1 APPLICATION BY TOPICAL ROUTE TWICE DAILY)
  4. UNSPECIFIED MEDICATION [Interacting]
     Active Substance: UNSPECIFIED INGREDIENT
     Indication: PRODUCT USED FOR UNKNOWN INDICATION
     Route: 048
  5. TACROLIMUS. [Suspect]
     Active Substance: TACROLIMUS
     Indication: PROPHYLAXIS AGAINST GRAFT VERSUS HOST DISEASE
     Dosage: MIXING 6 TACROLIMUS CAPSULES (5 MG EACH) WITH 30MLS OF SYRUP + 30MLS OF ORAL SUSPENDING VEHICLE.
     Route: 048
  6. ONDANSETRON [Concomitant]
     Active Substance: ONDANSETRON
     Indication: VOMITING
     Dosage: EVERY 8 HOURS AS NEEDED
     Route: 048
  7. VALACICLOVIR [Concomitant]
     Active Substance: VALACYCLOVIR HYDROCHLORIDE
     Dosage: EVERY 8 HOURS
     Route: 048
  8. PARACETAMOL [Concomitant]
     Active Substance: ACETAMINOPHEN
     Indication: PAIN
     Dosage: EVERY 6 HOURS AS NEEDED FOR PAIN FOR 30 DOSES
     Route: 048
  9. FAMOTIDINE. [Concomitant]
     Active Substance: FAMOTIDINE
     Route: 048
  10. DIPHENHYDRAMINE [Concomitant]
     Active Substance: DIPHENHYDRAMINE
     Dosage: EVERY 6 HOURS AS NEEDED
     Route: 048

REACTIONS (7)
  - Diarrhoea [Unknown]
  - Product substitution issue [Unknown]
  - Drug interaction [Unknown]
  - Drug level below therapeutic [Recovered/Resolved]
  - Graft versus host disease in skin [Recovering/Resolving]
  - Irritability [None]
  - Pruritus [None]
